FAERS Safety Report 4961895-6 (Version None)
Quarter: 2006Q2

REPORT INFORMATION
  Report Type: 
  Country: None (occurrence: None)
  Receive Date: 20060404
  Receipt Date: 20060331
  Transmission Date: 20061013
  Serious: Yes (Death)
  Sender: FDA-Public Use
  Company Number: 2006UW05728

PATIENT
  Age: 74 Year
  Sex: Female

DRUGS (8)
  1. SEROQUEL [Suspect]
     Dosage: 50-100 MG
     Route: 048
  2. ARICEPT [Concomitant]
  3. LASIX [Concomitant]
  4. POTASSIUM [Concomitant]
  5. NORVASC [Concomitant]
  6. DIOVAN [Concomitant]
  7. AVANDIA [Concomitant]
  8. MICARDIS [Concomitant]

REACTIONS (1)
  - DEATH [None]
